FAERS Safety Report 11838683 (Version 1)
Quarter: 2015Q4

REPORT INFORMATION
  Report Type: Spontaneous
  Country: US (occurrence: US)
  Receive Date: 20151215
  Receipt Date: 20151215
  Transmission Date: 20160305
  Serious: Yes (Other)
  Sender: FDA-Public Use
  Company Number: US-SA-2015SA091477

PATIENT
  Age: 58 Year
  Sex: Female
  Weight: 68.4 kg

DRUGS (14)
  1. OXYCONTIN [Concomitant]
     Active Substance: OXYCODONE HYDROCHLORIDE
     Route: 048
     Dates: start: 20141222
  2. ZOFRAN [Concomitant]
     Active Substance: ONDANSETRON HYDROCHLORIDE
     Dosage: DOSE: 1 TAB EVERY 6 HOURS PRN
     Route: 048
     Dates: start: 20141222
  3. AVASTIN [Concomitant]
     Active Substance: BEVACIZUMAB
  4. ABRAXANE [Concomitant]
     Active Substance: PACLITAXEL
  5. LIDOCAINE. [Concomitant]
     Active Substance: LIDOCAINE
     Dosage: APPLIED PATCH TO THE AFFECTED AREA AND LEFT IN PLACE FOR 12 HOURS THEN REMOVED AND LEFT OFF
     Dates: start: 20141222
  6. TAXOTERE [Suspect]
     Active Substance: DOCETAXEL
     Indication: CHEMOTHERAPY
     Route: 065
  7. CYTOXAN [Concomitant]
     Active Substance: CYCLOPHOSPHAMIDE
  8. PANTOPRAZOLE SODIUM. [Concomitant]
     Active Substance: PANTOPRAZOLE SODIUM
     Route: 048
  9. ATIVAN [Concomitant]
     Active Substance: LORAZEPAM
     Indication: ANXIETY
     Dosage: DOSE: 2 TABLETS 3 TIMES DAILY AS NEEDED
     Route: 048
     Dates: start: 20141222
  10. ADRIAMYCIN [Concomitant]
     Active Substance: DOXORUBICIN HYDROCHLORIDE
  11. OXYCODONE [Concomitant]
     Active Substance: OXYCODONE
     Dosage: STRENGTH: 7.5-325 MG EVERY 4-6 HOURS AS NEEDED FOR PAIN
     Route: 048
     Dates: end: 20150309
  12. TAMSULOSIN HYDROCHLORIDE. [Concomitant]
     Active Substance: TAMSULOSIN HYDROCHLORIDE
     Route: 048
     Dates: start: 20140521
  13. MAGNESIUM OXIDE. [Concomitant]
     Active Substance: MAGNESIUM OXIDE
     Route: 048
     Dates: start: 20141222
  14. XGEVA [Concomitant]
     Active Substance: DENOSUMAB
     Route: 058
     Dates: start: 20141222

REACTIONS (1)
  - Disease progression [Unknown]
